FAERS Safety Report 5077482-8 (Version None)
Quarter: 2006Q3

REPORT INFORMATION
  Report Type: 
  Country: None (occurrence: None)
  Receive Date: 20060810
  Receipt Date: 20060310
  Transmission Date: 20061208
  Serious: No
  Sender: FDA-Public Use
  Company Number: US-GLAXOSMITHKLINE-A0597128A

PATIENT
  Age: 33 Year
  Sex: Male

DRUGS (4)
  1. PAXIL [Suspect]
     Dosage: 20MG PER DAY
     Route: 048
     Dates: start: 20010101, end: 20060305
  2. HYDROCHLOROTHIAZIDE [Concomitant]
  3. VERAPAMIL [Concomitant]
  4. RANITIDINE [Concomitant]

REACTIONS (1)
  - PARAESTHESIA [None]
